FAERS Safety Report 10904526 (Version 1)
Quarter: 2015Q1

REPORT INFORMATION
  Report Type: Report from Study
  Country: CO (occurrence: CO)
  Receive Date: 20150311
  Receipt Date: 20150311
  Transmission Date: 20150721
  Serious: Yes (Hospitalization)
  Sender: FDA-Public Use
  Company Number: CO-ABBVIE-15K-036-1357773-00

PATIENT
  Age: 48 Year
  Sex: Male
  Weight: 115 kg

DRUGS (1)
  1. HUMIRA [Suspect]
     Active Substance: ADALIMUMAB
     Indication: ANKYLOSING SPONDYLITIS
     Route: 058
     Dates: start: 20140422, end: 20150219

REACTIONS (5)
  - Peau d^orange [Recovering/Resolving]
  - Visual impairment [Recovering/Resolving]
  - Eye pain [Recovering/Resolving]
  - Eye inflammation [Recovering/Resolving]
  - Pyrexia [Recovering/Resolving]

NARRATIVE: CASE EVENT DATE: 20150226
